FAERS Safety Report 4589150-7 (Version None)
Quarter: 2005Q1

REPORT INFORMATION
  Report Type: 
  Country: None (occurrence: None)
  Receive Date: 20050215
  Receipt Date: 20050215
  Transmission Date: 20050727
  Serious: No
  Sender: FDA-Public Use
  Company Number: None

PATIENT
  Age: 67 Year
  Sex: Male
  Weight: 75 kg

DRUGS (2)
  1. AMIODARONE [Suspect]
     Indication: ATRIAL FIBRILLATION
     Dosage: 150MG/MIN  THEN 1MG/MIN INTRAVENOUS
     Route: 042
     Dates: start: 20040614, end: 20040616
  2. AMIODARONE [Suspect]
     Indication: ATRIAL FIBRILLATION
     Dosage: 400MG  DAILY ORAL
     Route: 048
     Dates: start: 20040616, end: 20040618

REACTIONS (5)
  - AORTIC DISSECTION [None]
  - HEPATIC ENZYME ABNORMAL [None]
  - HYPERBILIRUBINAEMIA [None]
  - JAUNDICE [None]
  - MENTAL STATUS CHANGES [None]
